FAERS Safety Report 5716372-1 (Version None)
Quarter: 2008Q2

REPORT INFORMATION
  Report Type: 
  Country: None (occurrence: None)
  Receive Date: 20080424
  Receipt Date: 20080418
  Transmission Date: 20081010
  Serious: Yes (Hospitalization, Other)
  Sender: FDA-Public Use
  Company Number: PHNU2008DE00679

PATIENT
  Age: 70 Year
  Sex: Female

DRUGS (6)
  1. DIOVAN [Suspect]
     Indication: HYPERTENSION
     Dosage: 1 DF, BID
     Route: 048
     Dates: start: 20080121
  2. ACETYLSALICYLIC ACID SRT [Concomitant]
     Dosage: 1 DF, QD
     Dates: start: 20071101
  3. MOXONIDINE [Concomitant]
     Dosage: 1 DF, BID
     Dates: start: 20071101
  4. NEBILET [Concomitant]
     Dosage: 0.5 MG/D
     Route: 048
     Dates: start: 20071101
  5. HYDROCHLOROTHIAZIDE [Concomitant]
     Dates: start: 20071101
  6. ANTIHYPERTENSIVE DRUGS [Concomitant]

REACTIONS (6)
  - ARTERIAL STENT INSERTION [None]
  - BLOOD PRESSURE FLUCTUATION [None]
  - BLOOD PRESSURE INADEQUATELY CONTROLLED [None]
  - CHEST DISCOMFORT [None]
  - HEADACHE [None]
  - NAUSEA [None]
